FAERS Safety Report 9484833 (Version 2)
Quarter: 2013Q3

REPORT INFORMATION
  Report Type: Spontaneous
  Country: FR (occurrence: FR)
  Receive Date: 20130828
  Receipt Date: 20130930
  Transmission Date: 20140515
  Serious: Yes (Hospitalization)
  Sender: FDA-Public Use
  Company Number: FR-VIIV HEALTHCARE LIMITED-B0917656A

PATIENT
  Age: 65 Year
  Sex: Male
  Weight: 90 kg

DRUGS (7)
  1. CELSENTRI [Suspect]
     Indication: HIV INFECTION
     Dosage: 300MG TWICE PER DAY
     Route: 048
     Dates: start: 2010
  2. PREZISTA [Suspect]
     Indication: HIV INFECTION
     Dosage: 600MG FOUR TIMES PER DAY
     Route: 048
     Dates: start: 2008
  3. ISENTRESS [Suspect]
     Indication: HIV INFECTION
     Dosage: 400MG TWICE PER DAY
     Route: 048
     Dates: start: 2008
  4. NORVIR [Concomitant]
     Indication: HIV INFECTION
     Dosage: 100MG TWICE PER DAY
     Route: 048
     Dates: start: 2008
  5. INTELENCE [Concomitant]
     Indication: HIV INFECTION
     Route: 065
  6. TRUVADA [Concomitant]
     Indication: HIV INFECTION
     Dosage: 1TAB PER DAY
     Route: 048
     Dates: start: 2008, end: 201304
  7. ESIDREX [Concomitant]
     Indication: HYPERTENSION
     Dosage: 1TAB PER DAY
     Route: 048

REACTIONS (10)
  - Mitochondrial cytopathy [Not Recovered/Not Resolved]
  - Myalgia [Not Recovered/Not Resolved]
  - Asthenia [Unknown]
  - Headache [Unknown]
  - Pain [Unknown]
  - Blood creatine phosphokinase increased [Recovered/Resolved]
  - Muscle atrophy [Recovered/Resolved]
  - Hyperparathyroidism secondary [Recovered/Resolved]
  - Vitamin D deficiency [Recovered/Resolved]
  - Hypophosphataemia [Recovered/Resolved]
